FAERS Safety Report 20447535 (Version 1)
Quarter: 2022Q1

REPORT INFORMATION
  Report Type: Report from Study
  Country: US (occurrence: US)
  Receive Date: 20220209
  Receipt Date: 20220209
  Transmission Date: 20220423
  Serious: No
  Sender: FDA-Public Use
  Company Number: US-HRARD-2021001317

PATIENT
  Age: 75 Year
  Sex: Female

DRUGS (4)
  1. LYSODREN [Suspect]
     Active Substance: MITOTANE
     Dosage: 02 TABLETS BID
     Route: 048
     Dates: start: 20201016
  2. LYSODREN [Suspect]
     Active Substance: MITOTANE
     Dosage: 02 TABLETS BID
     Route: 048
  3. A-HYDROCORT [Concomitant]
     Active Substance: HYDROCORTISONE SODIUM SUCCINATE
  4. Crestor tab 10 mg [Concomitant]

REACTIONS (3)
  - Product physical issue [Unknown]
  - Product use complaint [Unknown]
  - Wrong technique in product usage process [Unknown]

NARRATIVE: CASE EVENT DATE: 20211012
